FAERS Safety Report 6815248-6 (Version None)
Quarter: 2010Q3

REPORT INFORMATION
  Report Type: 
  Country: None (occurrence: None)
  Receive Date: 20100701
  Receipt Date: 20100701
  Transmission Date: 20110219
  Serious: Yes (Hospitalization)
  Sender: FDA-Public Use
  Company Number: None

PATIENT
  Age: 84 Year
  Sex: Male
  Weight: 66.32 kg

DRUGS (1)
  1. MELPHALAN HYDROCHLORIDE [Suspect]
     Indication: MULTIPLE MYELOMA
     Dosage: 16 MG EVERY DAY PO
     Route: 048
     Dates: start: 20100317, end: 20100320

REACTIONS (1)
  - LEUKOCYTOCLASTIC VASCULITIS [None]
